FAERS Safety Report 4741336-4 (Version None)
Quarter: 2005Q3

REPORT INFORMATION
  Report Type: 
  Country: None (occurrence: None)
  Receive Date: 20050808
  Receipt Date: 20050726
  Transmission Date: 20060218
  Serious: Yes (Other)
  Sender: FDA-Public Use
  Company Number: USA0507103827

PATIENT
  Age: 38 Year
  Sex: Female

DRUGS (1)
  1. FORTEO [Suspect]
     Dates: start: 20040301

REACTIONS (2)
  - FRACTURE [None]
  - PHARMACEUTICAL PRODUCT COMPLAINT [None]
